FAERS Safety Report 4954756-X (Version None)
Quarter: 2006Q1

REPORT INFORMATION
  Report Type: 
  Country: None (occurrence: None)
  Receive Date: 20060322
  Receipt Date: 20060317
  Transmission Date: 20060701
  Serious: Yes (Hospitalization)
  Sender: FDA-Public Use
  Company Number: 200611059GDS

PATIENT

DRUGS (1)
  1. ACARBOSE [Suspect]
     Indication: DIABETES MELLITUS

REACTIONS (1)
  - ANAEMIA [None]
